FAERS Safety Report 25716900 (Version 1)
Quarter: 2025Q3

REPORT INFORMATION
  Report Type: Spontaneous
  Country: US (occurrence: US)
  Receive Date: 20250822
  Receipt Date: 20250822
  Transmission Date: 20251020
  Serious: No
  Sender: ASCENT PHARMACEUTICALS INC
  Company Number: US-ASCENT-2025ASSPO00134

PATIENT
  Age: 8 Year
  Sex: Male
  Weight: 22 kg

DRUGS (1)
  1. DEXMETHYLPHENIDATE HYDROCHLORIDE [Suspect]
     Active Substance: DEXMETHYLPHENIDATE HYDROCHLORIDE
     Indication: Attention deficit hyperactivity disorder
     Route: 048
     Dates: start: 20250615, end: 20250616

REACTIONS (3)
  - Behaviour disorder [Recovered/Resolved]
  - Aggression [Recovered/Resolved]
  - Moaning [Recovered/Resolved]

NARRATIVE: CASE EVENT DATE: 20250616
